FAERS Safety Report 4765986-4 (Version None)
Quarter: 2005Q3

REPORT INFORMATION
  Report Type: 
  Country: None (occurrence: None)
  Receive Date: 20050912
  Receipt Date: 20050905
  Transmission Date: 20060218
  Serious: Yes (Disabling, Other)
  Sender: FDA-Public Use
  Company Number: PHBS2005MX12980

PATIENT
  Age: 56 Year
  Sex: Female

DRUGS (5)
  1. TEGRETOL [Suspect]
     Indication: EPILEPSY
     Dosage: 200 MG, TID
     Route: 048
     Dates: start: 20050630, end: 20050707
  2. EPAMIN [Concomitant]
     Dates: start: 20050630, end: 20050822
  3. CLONAZEPAM [Concomitant]
     Dosage: 2 MG, QD
     Dates: start: 20050630, end: 20050822
  4. TOPAMAX [Concomitant]
     Dosage: 25 MG, TID
     Dates: start: 20050630, end: 20050822
  5. PANTOZOL [Concomitant]
     Dosage: 40 MG, QD
     Dates: start: 20050630, end: 20050822

REACTIONS (12)
  - APHASIA [None]
  - CONSTIPATION [None]
  - CONTUSION [None]
  - DIZZINESS [None]
  - DYSPHAGIA [None]
  - HYPOKINESIA [None]
  - OVERDOSE [None]
  - PHARYNGOLARYNGEAL PAIN [None]
  - RASH [None]
  - SKIN DISCOLOURATION [None]
  - VOMITING [None]
  - WEIGHT DECREASED [None]
